FAERS Safety Report 16409214 (Version 1)
Quarter: 2019Q2

REPORT INFORMATION
  Report Type: Spontaneous
  Country: TN (occurrence: TN)
  Receive Date: 20190610
  Receipt Date: 20190610
  Transmission Date: 20190711
  Serious: Yes (Hospitalization, Other)
  Sender: FDA-Public Use
  Company Number: TN-GLAXOSMITHKLINE-TN2019GSK099847

PATIENT
  Age: 54 Year
  Sex: Female

DRUGS (2)
  1. ACITRETIN. [Suspect]
     Active Substance: ACITRETIN
     Indication: DERMATITIS EXFOLIATIVE GENERALISED
  2. ACITRETIN. [Suspect]
     Active Substance: ACITRETIN
     Indication: PSORIASIS
     Dosage: 10 MG, 1D
     Route: 048

REACTIONS (14)
  - Skin exfoliation [Unknown]
  - Skin infection [Unknown]
  - Skin plaque [Unknown]
  - Onychomadesis [Unknown]
  - Joint swelling [Unknown]
  - Joint dislocation [Unknown]
  - Generalised erythema [Unknown]
  - Palmar-plantar erythrodysaesthesia syndrome [Unknown]
  - Alopecia [Unknown]
  - Arthritis bacterial [Recovered/Resolved]
  - Sepsis [Recovered/Resolved]
  - Pyrexia [Unknown]
  - Nail disorder [Unknown]
  - Arthropathy [Unknown]
